FAERS Safety Report 19727954 (Version 1)
Quarter: 2021Q3

REPORT INFORMATION
  Report Type: Spontaneous
  Country: CN (occurrence: CN)
  Receive Date: 20210820
  Receipt Date: 20210820
  Transmission Date: 20211014
  Serious: Yes (Hospitalization)
  Sender: FDA-Public Use
  Company Number: CN-BAXTER-2021BAX025394

PATIENT
  Age: 28 Year
  Sex: Female
  Weight: 38 kg

DRUGS (6)
  1. 0.9% SODIUM CHLORIDE INJECTION [Suspect]
     Active Substance: SODIUM CHLORIDE
     Indication: MEDICATION DILUTION
     Dosage: 0.9% SODIUM CHLORIDE 100ML + CYCLOPHOSPHAMIDE 1 G
     Route: 041
     Dates: start: 20210710, end: 20210710
  2. 0.9% SODIUM CHLORIDE INJECTION [Suspect]
     Active Substance: SODIUM CHLORIDE
     Dosage: 0.9% SODIUM CHLORIDE 250ML + PIRARUBICIN HYDROCHLORIDE 65 MG
     Route: 041
     Dates: start: 20210710, end: 20210710
  3. ENDOXAN [Suspect]
     Active Substance: CYCLOPHOSPHAMIDE
     Indication: DIFFUSE LARGE B-CELL LYMPHOMA
     Dosage: CYCLOPHOSPHAMIDE 1 G + 0.9% SODIUM CHLORIDE 100ML
     Route: 041
     Dates: start: 20210710, end: 20210710
  4. 0.9% SODIUM CHLORIDE INJECTION [Suspect]
     Active Substance: SODIUM CHLORIDE
     Dosage: 0.9% SODIUM CHLORIDE 100ML + VINCRISTINE SULFATE 1.8 MG
     Route: 041
     Dates: start: 20210710, end: 20210710
  5. VINCRISTINE SULFATE. [Suspect]
     Active Substance: VINCRISTINE SULFATE
     Indication: DIFFUSE LARGE B-CELL LYMPHOMA
     Dosage: VINCRISTINE SULFATE 1.8 MG + 0.9% SODIUM CHLORIDE 100ML
     Route: 041
     Dates: start: 20210710, end: 20210710
  6. PIRARUBICIN HYDROCHLORIDE [Suspect]
     Active Substance: PIRARUBICIN HYDROCHLORIDE
     Indication: DIFFUSE LARGE B-CELL LYMPHOMA
     Dosage: PIRARUBICIN HYDROCHLORIDE 65 MG + 0.9% SODIUM CHLORIDE 250ML
     Route: 041
     Dates: start: 20210710, end: 20210710

REACTIONS (2)
  - White blood cell count decreased [Recovering/Resolving]
  - Neutrophil count decreased [Recovering/Resolving]

NARRATIVE: CASE EVENT DATE: 20210719
